FAERS Safety Report 5623054-3 (Version None)
Quarter: 2008Q1

REPORT INFORMATION
  Report Type: 
  Country: None (occurrence: None)
  Receive Date: 20080212
  Receipt Date: 20080204
  Transmission Date: 20080703
  Serious: Yes (Hospitalization)
  Sender: FDA-Public Use
  Company Number: ES-AVENTIS-200810646EU

PATIENT
  Age: 71 Year
  Sex: Male

DRUGS (2)
  1. SEGURIL                            /00032601/ [Suspect]
     Route: 048
     Dates: start: 20070112, end: 20070201
  2. ALDACTONE [Suspect]
     Route: 048
     Dates: start: 20070112, end: 20070201

REACTIONS (1)
  - RENAL FAILURE ACUTE [None]
